FAERS Safety Report 8722254 (Version 6)
Quarter: 2017Q2

REPORT INFORMATION
  Report Type: Spontaneous
  Country: US (occurrence: US)
  Receive Date: 20120814
  Receipt Date: 20170607
  Transmission Date: 20170830
  Serious: Yes (Hospitalization, Other)
  Sender: FDA-Public Use
  Company Number: US-JNJFOC-20120803924

PATIENT
  Age: 50 Year
  Sex: Female

DRUGS (3)
  1. LEVAQUIN [Suspect]
     Active Substance: LEVOFLOXACIN
     Indication: SINUSITIS
     Dosage: 500-750 MG
     Route: 048
     Dates: start: 20030305
  2. LEVAQUIN [Suspect]
     Active Substance: LEVOFLOXACIN
     Indication: BRONCHITIS
     Dosage: 500-750 MG
     Route: 048
     Dates: start: 20030305
  3. LEVAQUIN [Suspect]
     Active Substance: LEVOFLOXACIN
     Indication: CYSTITIS
     Dosage: 500-750 MG
     Route: 048
     Dates: start: 20030305

REACTIONS (11)
  - Meniscus injury [Unknown]
  - Uterine prolapse [Unknown]
  - Retinal detachment [Unknown]
  - Plantar fasciitis [Unknown]
  - Tendon disorder [Unknown]
  - Tendon rupture [Unknown]
  - Eye pain [Unknown]
  - Hernia [Unknown]
  - Tendonitis [Unknown]
  - Cardiac aneurysm [Unknown]
  - Tendon disorder [Unknown]

NARRATIVE: CASE EVENT DATE: 2009
